FAERS Safety Report 7836673-0 (Version None)
Quarter: 2011Q4

REPORT INFORMATION
  Report Type: 
  Country: None (occurrence: None)
  Receive Date: 20111024
  Receipt Date: 20110222
  Transmission Date: 20120403
  Serious: No
  Sender: FDA-Public Use
  Company Number: US-ABBOTT-11P-163-0707384-00

PATIENT
  Sex: Female
  Weight: 61.29 kg

DRUGS (5)
  1. CALCIUM CARBONATE [Concomitant]
     Indication: MINERAL SUPPLEMENTATION
  2. FISH OIL [Concomitant]
     Indication: SUPPLEMENTATION THERAPY
  3. LUPRON DEPOT [Suspect]
     Indication: UTERINE LEIOMYOMA
     Dates: start: 20101001
  4. PROZAC [Concomitant]
     Indication: ANXIETY
  5. IMITREX [Concomitant]
     Indication: MIGRAINE

REACTIONS (1)
  - HOT FLUSH [None]
